FAERS Safety Report 5039915-2 (Version None)
Quarter: 2006Q2

REPORT INFORMATION
  Report Type: 
  Country: None (occurrence: None)
  Receive Date: 20060601
  Receipt Date: 20060201
  Transmission Date: 20061013
  Serious: No
  Sender: FDA-Public Use
  Company Number: 2005PV004561

PATIENT
  Age: 58 Year
  Sex: Female
  Weight: 81.6475 kg

DRUGS (14)
  1. BYETTA [Suspect]
     Indication: GLUCOSE TOLERANCE IMPAIRED
     Dosage: SEE IMAGE
     Route: 058
     Dates: start: 20051101, end: 20051119
  2. BYETTA [Suspect]
     Indication: GLUCOSE TOLERANCE IMPAIRED
     Dosage: SEE IMAGE
     Route: 058
     Dates: start: 20051201
  3. ALLEGRA [Suspect]
     Dosage: SEE IMAGE
     Route: 048
     Dates: start: 20051101, end: 20051201
  4. ALLEGRA [Suspect]
     Dosage: SEE IMAGE
     Route: 048
     Dates: start: 20051201, end: 20060101
  5. ALLEGRA [Suspect]
     Dosage: SEE IMAGE
     Route: 048
     Dates: start: 20060101, end: 20060101
  6. ALLEGRA [Suspect]
     Dosage: SEE IMAGE
     Route: 048
     Dates: start: 20060101
  7. HYZAAR [Concomitant]
  8. TRICOR [Concomitant]
  9. TOPROL-XL [Concomitant]
  10. DICLOFENAC [Concomitant]
  11. MOBIC [Concomitant]
  12. PROGESTERONE [Concomitant]
  13. ESTRASORB [Concomitant]
  14. AVANDIA [Concomitant]

REACTIONS (17)
  - BLOOD GLUCOSE INCREASED [None]
  - BLOOD PRESSURE INCREASED [None]
  - DIZZINESS [None]
  - FATIGUE [None]
  - FEELING JITTERY [None]
  - HEADACHE [None]
  - HYPERHIDROSIS [None]
  - INJECTION SITE BRUISING [None]
  - INJECTION SITE DISCOLOURATION [None]
  - INJECTION SITE ERYTHEMA [None]
  - INJECTION SITE PAIN [None]
  - INJECTION SITE PRURITUS [None]
  - INJECTION SITE RASH [None]
  - KERATOCONJUNCTIVITIS SICCA [None]
  - NASAL DRYNESS [None]
  - TINNITUS [None]
  - VISION BLURRED [None]
